FAERS Safety Report 24228260 (Version 2)
Quarter: 2024Q4

REPORT INFORMATION
  Report Type: Spontaneous
  Country: HU (occurrence: HU)
  Receive Date: 20240820
  Receipt Date: 20241007
  Transmission Date: 20250115
  Serious: Yes (Hospitalization, Disabling)
  Sender: SUNOVION
  Company Number: HU-RICHTER-2024-GR-008628

PATIENT

DRUGS (1)
  1. ESTRADIOL\NORETHINDRONE ACETATE\RELUGOLIX [Suspect]
     Active Substance: ESTRADIOL\NORETHINDRONE ACETATE\RELUGOLIX
     Indication: Uterine leiomyoma
     Dosage: 1 PILL/DAY
     Route: 048
     Dates: start: 20240625, end: 20240802

REACTIONS (3)
  - Condition aggravated [Recovered/Resolved]
  - Quality of life decreased [Unknown]
  - Heavy menstrual bleeding [Recovered/Resolved]
